FAERS Safety Report 8360420-X (Version None)
Quarter: 2012Q2

REPORT INFORMATION
  Report Type: 
  Country: None (occurrence: None)
  Receive Date: 20120515
  Receipt Date: 20120510
  Transmission Date: 20120825
  Serious: Yes (Other)
  Sender: FDA-Public Use
  Company Number: ES-PFIZER INC-2012105524

PATIENT
  Age: 74 Year
  Sex: Female

DRUGS (3)
  1. LYRICA [Suspect]
     Indication: ARTHRALGIA
     Dosage: 1 DF, 2X/DAY
     Dates: start: 20120101
  2. DONEKA [Concomitant]
  3. INSULIN [Concomitant]
     Indication: DIABETES MELLITUS

REACTIONS (6)
  - VISION BLURRED [None]
  - HYPOGLYCAEMIA [None]
  - WEIGHT INCREASED [None]
  - FLUID RETENTION [None]
  - KNEE ARTHROPLASTY [None]
  - OEDEMA PERIPHERAL [None]
